FAERS Safety Report 9209703 (Version 1)
Quarter: 2013Q1

REPORT INFORMATION
  Report Type: Spontaneous
  Country: US (occurrence: None)
  Receive Date: 20120820
  Receipt Date: 20120820
  Transmission Date: 20140127
  Serious: No
  Sender: FDA-Public Use
  Company Number: 1000030265

PATIENT
  Age: 70 Year
  Sex: Female

DRUGS (6)
  1. VIIBYRD [Suspect]
     Indication: DEPRESSION
     Route: 048
     Dates: start: 20120503
  2. VIIBYRD [Suspect]
     Indication: ANXIETY
     Route: 048
     Dates: start: 20120503
  3. ATIVAN (LORAZEPAM) (LORAZEPAM) [Concomitant]
  4. NEURONTIN (GABAPENTIN) (GABAPENTIN) [Concomitant]
  5. COUMADIN (WARFARIN) (WARFARIN) [Concomitant]
  6. INDERAL (PROPRANOLOL HYDROCHLORIDE) (PROPRANOLOL HYDROCHLORIDE) [Concomitant]

REACTIONS (4)
  - Dizziness [None]
  - Tremor [None]
  - Malaise [None]
  - Palpitations [None]
